FAERS Safety Report 4937700-0 (Version None)
Quarter: 2006Q1

REPORT INFORMATION
  Report Type: 
  Country: None (occurrence: None)
  Receive Date: 20060308
  Receipt Date: 20060308
  Transmission Date: 20060701
  Serious: Yes (Other)
  Sender: FDA-Public Use
  Company Number: None

PATIENT
  Sex: Female

DRUGS (2)
  1. FUROSEMIDE [Suspect]
     Indication: GASTROOESOPHAGEAL REFLUX DISEASE
     Dosage: 20MG 1 PO QD
     Route: 048
  2. BUMETANIDE [Suspect]
     Dosage: 20 MG 1 PO QD
     Route: 048

REACTIONS (3)
  - MUSCLE SPASMS [None]
  - RASH ERYTHEMATOUS [None]
  - RASH GENERALISED [None]
